FAERS Safety Report 18434070 (Version 1)
Quarter: 2020Q4

REPORT INFORMATION
  Report Type: Spontaneous
  Country: GB (occurrence: GB)
  Receive Date: 20201027
  Receipt Date: 20201027
  Transmission Date: 20210114
  Serious: Yes (Other)
  Sender: FDA-Public Use
  Company Number: NVSC2020GB285511

PATIENT
  Sex: Female

DRUGS (1)
  1. OMEPRAZOLE 20 MG GASTRO-RESISTANT CAPSULES [Suspect]
     Active Substance: OMEPRAZOLE
     Indication: PRODUCT USED FOR UNKNOWN INDICATION
     Dosage: 20 MG, QD (EARLY IN THE EVENING)
     Route: 065
     Dates: start: 2018

REACTIONS (2)
  - Hiatus hernia [Unknown]
  - Ulcer [Unknown]
